FAERS Safety Report 12289550 (Version 1)
Quarter: 2016Q2

REPORT INFORMATION
  Report Type: Spontaneous
  Country: US (occurrence: None)
  Receive Date: 20160420
  Receipt Date: 20160420
  Transmission Date: 20160815
  Serious: Yes (Other)
  Sender: FDA-Public Use
  Company Number: None

PATIENT
  Age: 63 Year
  Sex: Female
  Weight: 67.13 kg

DRUGS (1)
  1. JADENU [Suspect]
     Active Substance: DEFERASIROX
     Dosage: 180MG 4 TABLETS DAILY BY MOUTH
     Route: 048
     Dates: start: 20150810

REACTIONS (4)
  - Diarrhoea [None]
  - Abdominal discomfort [None]
  - Abdominal pain [None]
  - Flatulence [None]

NARRATIVE: CASE EVENT DATE: 20160408
